FAERS Safety Report 25265813 (Version 1)
Quarter: 2025Q2

REPORT INFORMATION
  Report Type: Spontaneous
  Country: AR (occurrence: AR)
  Receive Date: 20250503
  Receipt Date: 20250503
  Transmission Date: 20250716
  Serious: Yes (Death, Life-Threatening)
  Sender: ACCORD
  Company Number: AR-MLMSERVICE-20250416-PI476469-00101-1

PATIENT
  Age: 25 Year
  Sex: Female

DRUGS (10)
  1. CISPLATIN [Suspect]
     Active Substance: CISPLATIN
     Indication: Neuroendocrine carcinoma of the cervix
  2. ETOPOSIDE [Suspect]
     Active Substance: ETOPOSIDE
     Indication: Neuroendocrine carcinoma of the cervix
  3. SPIRONOLACTONE [Concomitant]
     Active Substance: SPIRONOLACTONE
  4. KETOCONAZOLE [Concomitant]
     Active Substance: KETOCONAZOLE
     Dosage: INCREASING DOSES UP TO 1200 MG/DAY
  5. CISPLATIN [Suspect]
     Active Substance: CISPLATIN
     Indication: Metastases to thorax
  6. CISPLATIN [Suspect]
     Active Substance: CISPLATIN
     Indication: Metastases to bone
  7. ETOPOSIDE [Suspect]
     Active Substance: ETOPOSIDE
     Indication: Metastases to thorax
  8. ETOPOSIDE [Suspect]
     Active Substance: ETOPOSIDE
     Indication: Metastases to bone
  9. CISPLATIN [Suspect]
     Active Substance: CISPLATIN
     Indication: Metastases to liver
  10. ETOPOSIDE [Suspect]
     Active Substance: ETOPOSIDE
     Indication: Metastases to liver

REACTIONS (2)
  - Septic shock [Fatal]
  - Febrile neutropenia [Fatal]
